FAERS Safety Report 8367249-7 (Version None)
Quarter: 2012Q2

REPORT INFORMATION
  Report Type: 
  Country: None (occurrence: None)
  Receive Date: 20120517
  Receipt Date: 20120515
  Transmission Date: 20120825
  Serious: No
  Sender: FDA-Public Use
  Company Number: US-PFIZER INC-2012118409

PATIENT
  Sex: Male

DRUGS (3)
  1. REYATAZ [Suspect]
     Dosage: UNK
  2. CHANTIX [Suspect]
     Indication: SMOKING CESSATION THERAPY
     Dosage: 0.5 MG, 1X/DAY
     Route: 048
  3. CHANTIX [Suspect]
     Dosage: 0.5 MG, UNK
     Route: 048

REACTIONS (3)
  - SLEEP DISORDER [None]
  - INSOMNIA [None]
  - ABNORMAL DREAMS [None]
